FAERS Safety Report 9715938 (Version 1)
Quarter: 2013Q4

REPORT INFORMATION
  Report Type: Spontaneous
  Country: US (occurrence: US)
  Receive Date: 20131127
  Receipt Date: 20131127
  Transmission Date: 20140711
  Serious: Yes (Hospitalization)
  Sender: FDA-Public Use
  Company Number: US-PERRIGO-13US012002

PATIENT
  Age: 76 Year
  Sex: Female

DRUGS (2)
  1. ACETAMINOPHEN 650MG ER 544 [Suspect]
     Indication: INTERVERTEBRAL DISCITIS
     Dosage: UNK, UNK
     Route: 065
  2. FLUCLOXACILLIN [Concomitant]
     Indication: INTERVERTEBRAL DISCITIS
     Dosage: UNK, UNK
     Route: 065

REACTIONS (5)
  - Metabolic acidosis [Not Recovered/Not Resolved]
  - Renal failure [Not Recovered/Not Resolved]
  - Hepatic enzyme increased [Not Recovered/Not Resolved]
  - Pyroglutamate increased [Not Recovered/Not Resolved]
  - Dyspnoea [Not Recovered/Not Resolved]
